FAERS Safety Report 15864407 (Version 1)
Quarter: 2019Q1

REPORT INFORMATION
  Report Type: Spontaneous
  Country: US (occurrence: US)
  Receive Date: 20190124
  Receipt Date: 20190124
  Transmission Date: 20190417
  Serious: Yes (Other)
  Sender: FDA-Public Use
  Company Number: US-TEVA-2019-US-1001478

PATIENT
  Age: 54 Year
  Sex: Male

DRUGS (3)
  1. PREDNISONE. [Suspect]
     Active Substance: PREDNISONE
     Indication: DERMATOMYOSITIS
     Dosage: HIGH DOSES (DOSAGES NOT SPECIFIED)
     Route: 065
     Dates: start: 2005
  2. AZATHIOPRINE. [Suspect]
     Active Substance: AZATHIOPRINE
     Indication: DERMATOMYOSITIS
     Route: 065
     Dates: start: 2005
  3. METHOTREXATE. [Suspect]
     Active Substance: METHOTREXATE
     Indication: DERMATOMYOSITIS
     Route: 065
     Dates: start: 2005

REACTIONS (2)
  - T-cell lymphoma [Recovered/Resolved]
  - Pulmonary embolism [Unknown]

NARRATIVE: CASE EVENT DATE: 201010
